FAERS Safety Report 5238210-6 (Version None)
Quarter: 2007Q1

REPORT INFORMATION
  Report Type: 
  Country: None (occurrence: None)
  Receive Date: 20061208
  Receipt Date: 20050523
  Transmission Date: 20070707
  Serious: Yes (Other)
  Sender: FDA-Public Use
  Company Number: 2005UW07934

PATIENT
  Age: 53 Year
  Sex: Male

DRUGS (2)
  1. ROSUVASTATIN [Suspect]
     Dosage: 10 MG PO
     Route: 048
     Dates: start: 20041130, end: 20050128
  2. ROSUVASTATIN [Suspect]
     Dosage: 10 MG PO
     Route: 048
     Dates: start: 20050302

REACTIONS (1)
  - HYPOAESTHESIA [None]
